FAERS Safety Report 13654210 (Version 2)
Quarter: 2017Q2

REPORT INFORMATION
  Report Type: Report from Study
  Country: US (occurrence: US)
  Receive Date: 20170614
  Receipt Date: 20170622
  Transmission Date: 20170830
  Serious: Yes (Hospitalization, Other)
  Sender: FDA-Public Use
  Company Number: US-AMGEN-USASL2017089414

PATIENT
  Age: 83 Year
  Sex: Female

DRUGS (3)
  1. ENBREL [Suspect]
     Active Substance: ETANERCEPT
     Dosage: 50 MG, QWK
     Route: 065
     Dates: start: 2016, end: 201611
  2. ENBREL [Suspect]
     Active Substance: ETANERCEPT
     Indication: RHEUMATOID ARTHRITIS
     Dosage: 50 MG, QWK
     Route: 065
     Dates: end: 201603
  3. ENBREL [Suspect]
     Active Substance: ETANERCEPT
     Dosage: 50 MG, EVERY OTHER WEEK
     Route: 065
     Dates: start: 201701

REACTIONS (4)
  - Rheumatoid arthritis [Unknown]
  - Intentional product misuse [Unknown]
  - Bartholin^s cyst [Unknown]
  - Wound [Unknown]

NARRATIVE: CASE EVENT DATE: 201603
